FAERS Safety Report 7974415-9 (Version None)
Quarter: 2011Q4

REPORT INFORMATION
  Report Type: 
  Country: None (occurrence: None)
  Receive Date: 20111213
  Receipt Date: 20111206
  Transmission Date: 20120403
  Serious: Yes (Other)
  Sender: FDA-Public Use
  Company Number: US-NOVOPROD-340904

PATIENT

DRUGS (1)
  1. NORDITROPIN FLEXPRO 3.3 MG/ML [Suspect]
     Indication: DWARFISM
     Dosage: 0.45 MG, QD
     Route: 058
     Dates: start: 20110604

REACTIONS (1)
  - CONVULSION [None]
